FAERS Safety Report 9332150 (Version 4)
Quarter: 2020Q3

REPORT INFORMATION
  Report Type: Spontaneous
  Country: GB (occurrence: GB)
  Receive Date: 20130606
  Receipt Date: 20200806
  Transmission Date: 20201103
  Serious: Yes (Life-Threatening, Other)
  Sender: FDA-Public Use
  Company Number: GB-RANBAXY-2013R1-69820

PATIENT
  Age: 64 Year

DRUGS (1)
  1. AMOXICILLIN/CLAVULANIC ACID [Suspect]
     Active Substance: AMOXICILLIN\CLAVULANIC ACID
     Indication: PRODUCT USED FOR UNKNOWN INDICATION
     Dosage: UNK
     Route: 065

REACTIONS (4)
  - Cardiac arrest [Recovering/Resolving]
  - Cardiac output decreased [Recovered/Resolved]
  - Anaphylactic reaction [Recovering/Resolving]
  - Reperfusion injury [Unknown]
